FAERS Safety Report 5950794-9 (Version None)
Quarter: 2008Q4

REPORT INFORMATION
  Report Type: 
  Country: None (occurrence: None)
  Receive Date: 20081112
  Receipt Date: 20081111
  Transmission Date: 20090506
  Serious: Yes (Hospitalization)
  Sender: FDA-Public Use
  Company Number: DE-B.I. PHARMACEUTICALS,INC./RIDGEFIELD-2008-DE-06707DE

PATIENT
  Age: 72 Year
  Sex: Female

DRUGS (7)
  1. AGGRENOX [Suspect]
     Indication: CEREBROVASCULAR ACCIDENT
     Dosage: 1ANZ
     Route: 048
     Dates: start: 20060101, end: 20081020
  2. SERTRALIN 100 [Concomitant]
     Indication: DEPRESSION
  3. SERTRALIN 100 [Concomitant]
     Indication: SCHIZOPHRENIA
  4. IBUPROFEN [Concomitant]
  5. ACICLOVIR 800 [Concomitant]
  6. GLIMEPIRID 2 [Concomitant]
  7. THIAMAZOL 20 [Concomitant]

REACTIONS (7)
  - CEREBROVASCULAR ACCIDENT [None]
  - PARAESTHESIA [None]
  - PERIPHERAL VASCULAR DISORDER [None]
  - PSYCHIATRIC SYMPTOM [None]
  - PSYCHOMOTOR HYPERACTIVITY [None]
  - RESTLESSNESS [None]
  - SLEEP DISORDER [None]
